FAERS Safety Report 4440602-X (Version None)
Quarter: 2004Q3

REPORT INFORMATION
  Report Type: 
  Country: None (occurrence: None)
  Receive Date: 20040831
  Receipt Date: 20040811
  Transmission Date: 20050211
  Serious: Yes (Other)
  Sender: FDA-Public Use
  Company Number: USA040670710

PATIENT
  Age: 14 Year
  Sex: Male

DRUGS (2)
  1. SYMBYAX [Suspect]
     Indication: MAJOR DEPRESSION
     Dates: start: 20040607
  2. ADDERALL 20 [Concomitant]

REACTIONS (1)
  - CONVULSION [None]
